FAERS Safety Report 5240866-9 (Version None)
Quarter: 2007Q1

REPORT INFORMATION
  Report Type: 
  Country: None (occurrence: None)
  Receive Date: 20061208
  Receipt Date: 20050705
  Transmission Date: 20070707
  Serious: Yes (Other)
  Sender: FDA-Public Use
  Company Number: 2005UW06822

PATIENT
  Age: 73 Year
  Sex: Female
  Weight: 40.822 kg

DRUGS (7)
  1. CRESTOR [Suspect]
     Indication: BLOOD CHOLESTEROL INCREASED
     Dosage: 5 MG PO
     Route: 048
  2. CRESTOR [Suspect]
     Indication: BLOOD CHOLESTEROL INCREASED
     Dosage: 10 MG PO
     Route: 048
     Dates: start: 20050401
  3. PROTONIX [Concomitant]
  4. ATACAND [Concomitant]
  5. NORVASC [Concomitant]
  6. EVISTA [Concomitant]
  7. FOSAMAX [Concomitant]

REACTIONS (3)
  - FATIGUE [None]
  - MYALGIA [None]
  - OCULAR DISCOMFORT [None]
